FAERS Safety Report 4876531-7 (Version None)
Quarter: 2006Q1

REPORT INFORMATION
  Report Type: 
  Country: None (occurrence: None)
  Receive Date: 20060110
  Receipt Date: 20060103
  Transmission Date: 20060701
  Serious: Yes (Other)
  Sender: FDA-Public Use
  Company Number: GB-GLAXOSMITHKLINE-B0405312A

PATIENT
  Age: 38 Year
  Weight: 66.7 kg

DRUGS (7)
  1. LAMIVUDINE [Suspect]
     Indication: HIV INFECTION
     Dosage: 300MG PER DAY
     Route: 048
     Dates: start: 20051110
  2. EFAVIRENZ [Suspect]
     Indication: HIV INFECTION
     Dosage: 600MG PER DAY
     Route: 048
     Dates: start: 20051110, end: 20051123
  3. TRUVADA [Suspect]
     Indication: HIV INFECTION
     Route: 048
     Dates: start: 20051110
  4. AZITHROMYCIN [Concomitant]
     Dosage: 1G SINGLE DOSE
     Route: 048
     Dates: start: 20051028, end: 20051028
  5. FLUCONAZOLE [Concomitant]
     Dosage: 50MG PER DAY
     Route: 048
     Dates: start: 20051028
  6. METRONIDAZOLE [Concomitant]
     Dosage: 50MG PER DAY
     Route: 048
     Dates: start: 20051004, end: 20051011
  7. IBUPROFEN [Concomitant]
     Route: 065
     Dates: start: 20051004, end: 20051011

REACTIONS (5)
  - DEPRESSED MOOD [None]
  - DIZZINESS [None]
  - HALLUCINATION [None]
  - PARANOIA [None]
  - TEARFULNESS [None]
